FAERS Safety Report 11218454 (Version 1)
Quarter: 2015Q2

REPORT INFORMATION
  Report Type: Spontaneous
  Country: AU (occurrence: None)
  Receive Date: 20150623
  Receipt Date: 20150623
  Transmission Date: 20150821
  Serious: Yes (Life-Threatening, Hospitalization)
  Sender: FDA-Public Use
  Company Number: UCM201506-000415

PATIENT
  Age: 47 Year
  Sex: Male

DRUGS (1)
  1. CLONIDINE HCL (CLONIDINE HCL) (CLONIDINE HCL) [Suspect]
     Active Substance: CLONIDINE HYDROCHLORIDE
     Indication: BACK PAIN
     Route: 037

REACTIONS (5)
  - Hypertensive crisis [None]
  - Stress cardiomyopathy [None]
  - Off label use [None]
  - Device malfunction [None]
  - Drug withdrawal syndrome [None]
